FAERS Safety Report 12965552 (Version 1)
Quarter: 2016Q4

REPORT INFORMATION
  Report Type: Report from Study
  Country: None (occurrence: CA)
  Receive Date: 20161122
  Receipt Date: 20161122
  Transmission Date: 20170207
  Serious: Yes (Life-Threatening, Hospitalization, Other)
  Sender: FDA-Public Use
  Company Number: CA-ABBVIE-16P-028-1788501-00

PATIENT
  Age: 26 Year
  Sex: Female

DRUGS (8)
  1. COLACE [Concomitant]
     Active Substance: DOCUSATE SODIUM
     Indication: CONSTIPATION
     Route: 065
  2. FIBRISTAL [Concomitant]
     Active Substance: ULIPRISTAL
     Indication: PROGESTERONE RECEPTOR ASSAY
     Route: 065
  3. MORPHINE [Suspect]
     Active Substance: MORPHINE
     Indication: PRODUCT USED FOR UNKNOWN INDICATION
     Route: 065
  4. NORLUTATE [Concomitant]
     Active Substance: NORETHINDRONE ACETATE
     Indication: PRODUCT USED FOR UNKNOWN INDICATION
     Route: 065
  5. LUPRON DEPOT [Suspect]
     Active Substance: LEUPROLIDE ACETATE
     Indication: UTERINE LEIOMYOMA
     Route: 030
     Dates: start: 20150818
  6. IRON SUPPLEMENT [Concomitant]
     Active Substance: IRON
     Indication: ANAEMIA
     Route: 065
  7. NAPROXEN. [Concomitant]
     Active Substance: NAPROXEN
     Indication: ANTIINFLAMMATORY THERAPY
     Route: 065
  8. ESTRACE [Concomitant]
     Active Substance: ESTRADIOL
     Indication: HORMONE REPLACEMENT THERAPY
     Route: 065

REACTIONS (7)
  - Cervix disorder [Not Recovered/Not Resolved]
  - Abdominal pain [Not Recovered/Not Resolved]
  - Hot flush [Recovered/Resolved]
  - Abdominal pain [Recovered/Resolved]
  - Drug hypersensitivity [Recovered/Resolved]
  - Chest pain [Unknown]
  - Cardio-respiratory arrest [Recovered/Resolved]

NARRATIVE: CASE EVENT DATE: 20150818
